FAERS Safety Report 18090855 (Version 1)
Quarter: 2020Q3

REPORT INFORMATION
  Report Type: Spontaneous
  Country: ES (occurrence: ES)
  Receive Date: 20200730
  Receipt Date: 20200730
  Transmission Date: 20201103
  Serious: Yes (Hospitalization)
  Sender: FDA-Public Use
  Company Number: ES-ACCORD-193434

PATIENT
  Age: 7 Year
  Sex: Male
  Weight: 21.3 kg

DRUGS (1)
  1. CISPLATIN. [Suspect]
     Active Substance: CISPLATIN
     Indication: HEPATOBLASTOMA
     Dosage: 70MG/M2 07/03/2020M 14/03/2020, 04/04/2020, 05/05/2020
     Route: 042
     Dates: start: 20200314, end: 20200505

REACTIONS (1)
  - Renal tubular dysfunction [Not Recovered/Not Resolved]

NARRATIVE: CASE EVENT DATE: 20200528
